FAERS Safety Report 22338323 (Version 1)
Quarter: 2023Q2

REPORT INFORMATION
  Report Type: Spontaneous
  Country: US (occurrence: US)
  Receive Date: 20230518
  Receipt Date: 20230518
  Transmission Date: 20230721
  Serious: No
  Sender: FDA-Public Use
  Company Number: US-ELI_LILLY_AND_COMPANY-US202305010636

PATIENT
  Sex: Male

DRUGS (5)
  1. HUMALOG [Suspect]
     Active Substance: INSULIN LISPRO
     Indication: Type 2 diabetes mellitus
     Dosage: 3 U, PRN, 2-3 UNITS, BEFORE EACH MEAL AND DEPENDING ON SUGAR LEVELS
     Route: 065
     Dates: start: 2003
  2. HUMALOG [Suspect]
     Active Substance: INSULIN LISPRO
     Indication: Type 2 diabetes mellitus
     Dosage: 3 U, PRN, 2-3 UNITS, BEFORE EACH MEAL AND DEPENDING ON SUGAR LEVELS
     Route: 065
     Dates: start: 2003
  3. HUMALOG [Suspect]
     Active Substance: INSULIN LISPRO
     Dosage: 3 U, PRN, 2-3 UNITS, BEFORE EACH MEAL AND DEPENDING ON SUGAR LEVELS
     Route: 065
  4. HUMALOG [Suspect]
     Active Substance: INSULIN LISPRO
     Dosage: 3 U, PRN, 2-3 UNITS, BEFORE EACH MEAL AND DEPENDING ON SUGAR LEVELS
     Route: 065
  5. LANTUS [Concomitant]
     Active Substance: INSULIN GLARGINE
     Indication: Product used for unknown indication
     Dosage: UNK, EACH MORNING

REACTIONS (3)
  - Arthralgia [Unknown]
  - Blood glucose increased [Unknown]
  - Drug ineffective [Unknown]
